FAERS Safety Report 6509507-4 (Version None)
Quarter: 2009Q4

REPORT INFORMATION
  Report Type: 
  Country: None (occurrence: None)
  Receive Date: 20091222
  Receipt Date: 20091217
  Transmission Date: 20100525
  Serious: Yes (Other)
  Sender: FDA-Public Use
  Company Number: DE-AMGEN-UK166264

PATIENT
  Sex: Female
  Weight: 63.5 kg

DRUGS (3)
  1. ARANESP [Suspect]
     Indication: RENAL FAILURE CHRONIC
     Route: 042
     Dates: end: 20051204
  2. ZOLPIDEM [Concomitant]
     Route: 048
  3. FENISTIL [Concomitant]
     Route: 065

REACTIONS (3)
  - DYSPNOEA EXERTIONAL [None]
  - HAEMOGLOBIN DECREASED [None]
  - MUSCULOSKELETAL PAIN [None]
